FAERS Safety Report 26106298 (Version 2)
Quarter: 2025Q4

REPORT INFORMATION
  Report Type: Spontaneous
  Country: US (occurrence: US)
  Receive Date: 20251201
  Receipt Date: 20251230
  Transmission Date: 20260118
  Serious: Yes (Life-Threatening, Hospitalization, Other)
  Sender: ACCORD
  Company Number: US-Accord-515498

PATIENT
  Age: 46 Year
  Sex: Female

DRUGS (2)
  1. HYDROXYCHLOROQUINE [Suspect]
     Active Substance: HYDROXYCHLOROQUINE
     Indication: Systemic lupus erythematosus
     Dosage: ALTERNATING DOSES OF 200 MG AND?400 MG DAILY
  2. HYDROXYCHLOROQUINE [Suspect]
     Active Substance: HYDROXYCHLOROQUINE
     Indication: Systemic lupus erythematosus
     Dosage: ALTERNATING DOSES OF 200 MG AND?400 MG DAILY

REACTIONS (6)
  - Cardiotoxicity [Recovered/Resolved]
  - Microvascular coronary artery disease [Recovered/Resolved]
  - Heart failure with reduced ejection fraction [Recovered/Resolved]
  - Cardiomyopathy [Recovering/Resolving]
  - Heart valve incompetence [Recovering/Resolving]
  - Lupus endocarditis [Recovering/Resolving]
